FAERS Safety Report 7359699-2 (Version None)
Quarter: 2011Q1

REPORT INFORMATION
  Report Type: 
  Country: None (occurrence: None)
  Receive Date: 20110317
  Receipt Date: 20110309
  Transmission Date: 20110831
  Serious: Yes (Life-Threatening, Other)
  Sender: FDA-Public Use
  Company Number: JP-PFIZER INC-2011049925

PATIENT
  Age: 82 Year
  Sex: Female

DRUGS (14)
  1. LYRICA [Suspect]
     Dosage: 300 MG DAILY
     Route: 048
     Dates: start: 20110101
  2. WARFARIN [Concomitant]
     Dosage: 2 MG DAILY
  3. EVAMYL [Concomitant]
     Dosage: 2 MG DAILY
  4. EPALRESTAT [Concomitant]
     Dosage: 150 MG DAILY
  5. GOSHAJINKIGAN [Concomitant]
     Dosage: 7.5 MG, UNK
  6. LOXONIN [Concomitant]
     Dosage: 60 MG, AS NEEDED
  7. LIPITOR [Concomitant]
     Dosage: 10 MG DAILY
  8. TAKEPRON [Concomitant]
     Dosage: 30 MG DAILY
  9. CELECOXIB [Concomitant]
     Dosage: 200 MG DAILY
  10. MICARDIS [Concomitant]
     Dosage: 40 MG DAILY
  11. CALBLOCK [Concomitant]
     Dosage: 8 MG DAILY
  12. VOGLIBOSE [Concomitant]
     Dosage: 0.9 MG DAILY
  13. PRORNER [Concomitant]
     Dosage: 120 MMG DAILY
  14. NOVORAPID [Concomitant]

REACTIONS (1)
  - INTERSTITIAL LUNG DISEASE [None]
